FAERS Safety Report 14031160 (Version 1)
Quarter: 2017Q4

REPORT INFORMATION
  Report Type: Spontaneous
  Country: PT (occurrence: ES)
  Receive Date: 20171002
  Receipt Date: 20171002
  Transmission Date: 20180321
  Serious: Yes (Hospitalization, Other)
  Sender: FDA-Public Use
  Company Number: PT-SUNOVION-2017SUN004167

PATIENT

DRUGS (1)
  1. ZEBINIX [Suspect]
     Active Substance: ESLICARBAZEPINE ACETATE
     Indication: EPILEPSY
     Dosage: 400 MG, 1X / DAY
     Route: 048
     Dates: start: 20161230, end: 20170119

REACTIONS (4)
  - Myalgia [Recovered/Resolved]
  - Asthenia [Recovered/Resolved]
  - Neurotoxicity [Recovered/Resolved]
  - Somnolence [Recovered/Resolved]

NARRATIVE: CASE EVENT DATE: 20170114
